FAERS Safety Report 5362910-0 (Version None)
Quarter: 2007Q2

REPORT INFORMATION
  Report Type: 
  Country: None (occurrence: None)
  Receive Date: 20070615
  Receipt Date: 20070605
  Transmission Date: 20071010
  Serious: Yes (Hospitalization)
  Sender: FDA-Public Use
  Company Number: 2006US002653

PATIENT
  Age: 68 Year
  Sex: Female

DRUGS (7)
  1. PROGRAF [Suspect]
     Indication: PROPHYLAXIS AGAINST TRANSPLANT REJECTION
     Dosage: 2 MG, BID, ORAL
     Route: 048
     Dates: start: 20060712
  2. MYCOPHENOLATE MOFETIL [Suspect]
     Indication: PROPHYLAXIS AGAINST TRANSPLANT REJECTION
     Dosage: 500 MG, BID, ORAL
     Route: 048
     Dates: start: 20060708, end: 20061006
  3. METHYLPREDNISOLONE [Suspect]
     Indication: PROPHYLAXIS AGAINST TRANSPLANT REJECTION
     Dosage: 2 MG, ORAL
     Route: 048
     Dates: start: 20060711
  4. GANCICLOVIR [Concomitant]
  5. BACTRIM DS [Concomitant]
  6. LASIX [Concomitant]
  7. PRILOSEC [Concomitant]

REACTIONS (2)
  - HEPATIC ARTERY STENOSIS [None]
  - LIVER TRANSPLANT REJECTION [None]
